FAERS Safety Report 9466250 (Version 1)
Quarter: 2013Q3

REPORT INFORMATION
  Report Type: Spontaneous
  Country: GB (occurrence: GB)
  Receive Date: 20130820
  Receipt Date: 20130820
  Transmission Date: 20140515
  Serious: Yes (Other)
  Sender: FDA-Public Use
  Company Number: GB-PFIZER INC-2013238607

PATIENT
  Age: 62 Year
  Sex: Male

DRUGS (1)
  1. EFEXOR XL [Suspect]
     Indication: MAJOR DEPRESSION
     Dosage: 225 MG, UNK

REACTIONS (1)
  - Parkinson^s disease [Unknown]
